FAERS Safety Report 24800654 (Version 1)
Quarter: 2025Q1

REPORT INFORMATION
  Report Type: Spontaneous
  Country: US (occurrence: US)
  Receive Date: 20250102
  Receipt Date: 20250102
  Transmission Date: 20250409
  Serious: Yes (Other)
  Sender: JOHNSON AND JOHNSON
  Company Number: US-VIIV HEALTHCARE-US2024161220

PATIENT
  Age: 58 Year
  Sex: Male

DRUGS (2)
  1. CABENUVA [Suspect]
     Active Substance: CABOTEGRAVIR\RILPIVIRINE
     Indication: HIV infection
     Route: 030
     Dates: start: 20240701, end: 20240901
  2. CABOTEGRAVIR [Suspect]
     Active Substance: CABOTEGRAVIR
     Indication: HIV infection
     Route: 030
     Dates: start: 20240701, end: 20240901

REACTIONS (5)
  - Virologic failure [Not Recovered/Not Resolved]
  - Pathogen resistance [Unknown]
  - Viral mutation identified [Unknown]
  - Depression [Not Recovered/Not Resolved]
  - Blood cholesterol increased [Unknown]
